FAERS Safety Report 4527197-7 (Version None)
Quarter: 2004Q4

REPORT INFORMATION
  Report Type: 
  Country: None (occurrence: None)
  Receive Date: 20041214
  Receipt Date: 20041214
  Transmission Date: 20050328
  Serious: Yes (Hospitalization)
  Sender: FDA-Public Use
  Company Number: None

PATIENT
  Sex: Male
  Weight: 126.5536 kg

DRUGS (5)
  1. ABILIFY [Suspect]
     Indication: SCHIZOAFFECTIVE DISORDER
     Dosage: 15 MG P.O. DAILY IN AM
     Route: 048
     Dates: start: 20040309, end: 20040316
  2. ESKALITH CR [Concomitant]
  3. XANAX [Concomitant]
  4. ZOLOFT [Concomitant]
  5. NEURONTIN [Concomitant]

REACTIONS (5)
  - ABDOMINAL DISCOMFORT [None]
  - BACK PAIN [None]
  - NAUSEA [None]
  - PANCREATITIS [None]
  - WEIGHT DECREASED [None]
